FAERS Safety Report 24935911 (Version 1)
Quarter: 2025Q1

REPORT INFORMATION
  Report Type: Spontaneous
  Country: CZ (occurrence: CZ)
  Receive Date: 20250206
  Receipt Date: 20250206
  Transmission Date: 20250409
  Serious: Yes (Other)
  Sender: TEVA
  Company Number: None

PATIENT
  Age: 74 Year
  Sex: Female
  Weight: 93 kg

DRUGS (2)
  1. DOXYCYCLINE [Suspect]
     Active Substance: DOXYCYCLINE
     Indication: Cough
     Dosage: 1 TABLET DAILY
     Route: 048
     Dates: start: 20241231, end: 20250106
  2. PREDNISONE [Suspect]
     Active Substance: PREDNISONE
     Indication: Cough
     Route: 048
     Dates: start: 20241231, end: 20250106

REACTIONS (9)
  - Tongue coated [Not Recovered/Not Resolved]
  - Feeling abnormal [Not Recovered/Not Resolved]
  - Vomiting [Not Recovered/Not Resolved]
  - Abdominal pain [Not Recovered/Not Resolved]
  - Abdominal pain upper [Not Recovered/Not Resolved]
  - Weight decreased [Not Recovered/Not Resolved]
  - Decreased appetite [Not Recovered/Not Resolved]
  - Dysgeusia [Not Recovered/Not Resolved]
  - Hypertension [Not Recovered/Not Resolved]

NARRATIVE: CASE EVENT DATE: 20250101
